FAERS Safety Report 18584190 (Version 1)
Quarter: 2020Q4

REPORT INFORMATION
  Report Type: Spontaneous
  Country: ES (occurrence: ES)
  Receive Date: 20201207
  Receipt Date: 20201207
  Transmission Date: 20210114
  Serious: Yes (Hospitalization, Other)
  Sender: FDA-Public Use
  Company Number: ES-AMGEN-ESPSP2018187804

PATIENT
  Age: 53 Year
  Sex: Female
  Weight: 68.6 kg

DRUGS (23)
  1. BISOPROLOL [Concomitant]
     Active Substance: BISOPROLOL
     Dosage: 2.5-5 MILLIGRAM
     Route: 048
     Dates: start: 20171218, end: 20180318
  2. OSTINE [Concomitant]
     Dosage: 1 DOSAGE FORM (1250 MG+400 UI)
     Route: 048
     Dates: start: 20140305
  3. DEXAMETHASONE. [Concomitant]
     Active Substance: DEXAMETHASONE
     Dosage: UNK
     Dates: start: 20171108
  4. AMOXICILINA CLAVULANICO KERN PHARMA [Concomitant]
     Dosage: 875 MILLIGRAM
     Route: 048
     Dates: start: 20180301, end: 20180310
  5. ALPRAZOLAM. [Concomitant]
     Active Substance: ALPRAZOLAM
     Dosage: 0.25 MILLIGRAM
     Route: 048
     Dates: start: 20180109
  6. MEROPENEM. [Concomitant]
     Active Substance: MEROPENEM
     Dosage: 1000 GRAM
     Route: 048
     Dates: start: 20180311, end: 20180322
  7. ACICLOVIR [Concomitant]
     Active Substance: ACYCLOVIR
     Dosage: 800 MICROGRAM
     Route: 048
     Dates: start: 20180311, end: 20180323
  8. DENOSUMAB [Concomitant]
     Active Substance: DENOSUMAB
     Indication: PLASMA CELL MYELOMA
     Dosage: 1.7 MILLILITER
     Route: 065
     Dates: start: 20121016, end: 20180228
  9. LEXATIN [BROMAZEPAM] [Concomitant]
     Active Substance: BROMAZEPAM
     Dosage: 1.5 MILLIGRAM
     Route: 048
     Dates: start: 20121018
  10. KYPROLIS [Suspect]
     Active Substance: CARFILZOMIB
     Indication: PLASMA CELL MYELOMA
     Dosage: UNK
     Route: 065
     Dates: start: 20170108, end: 20180523
  11. ZOLEDRONIC ACID [Concomitant]
     Active Substance: ZOLEDRONIC ACID
     Indication: PLASMA CELL MYELOMA
     Dosage: 4 MILLIGRAM
     Route: 065
     Dates: start: 20121016, end: 20170104
  12. METAMIZOL [Concomitant]
     Active Substance: METAMIZOLE SODIUM
     Dosage: 575 MILLIGRAM
     Route: 048
     Dates: start: 20171127
  13. CEFUROXIMA [CEFUROXIME] [Concomitant]
     Dosage: 250-500 MILLIGRAM
     Route: 048
     Dates: start: 20171228, end: 20180322
  14. ODENIL [AMOROLFINE HYDROCHLORIDE] [Concomitant]
     Dosage: 1 DOSAGE FORM
     Route: 061
     Dates: start: 20140128
  15. OMEPRAZOLE [OMEPRAZOLE SODIUM] [Concomitant]
     Active Substance: OMEPRAZOLE SODIUM
     Dosage: 20 MILLIGRAM
     Route: 048
     Dates: start: 20180311, end: 20180323
  16. CLEXANE [Concomitant]
     Active Substance: ENOXAPARIN SODIUM
     Dosage: 40 MILLIGRAM
     Route: 058
     Dates: start: 20180109, end: 20180110
  17. ACETILCISTEINA [Concomitant]
     Active Substance: ACETYLCYSTEINE
     Dosage: 600 MILLIGRAM
     Route: 048
     Dates: start: 20180102
  18. PANTOPRAZOL [PANTOPRAZOLE] [Concomitant]
     Active Substance: PANTOPRAZOLE
     Dosage: 20-40 MILLIGRAM
     Route: 048
     Dates: start: 20130327, end: 20180311
  19. LORMETAZEPAM [Concomitant]
     Active Substance: LORMETAZEPAM
     Dosage: 2 MILLIGRAM
     Route: 048
     Dates: start: 20130603
  20. PARACETAMOL [Concomitant]
     Active Substance: ACETAMINOPHEN
     Dosage: 1 GRAM
     Route: 048
     Dates: start: 20130604
  21. LORAZEPAM. [Concomitant]
     Active Substance: LORAZEPAM
     Dosage: 1 MILLIGRAM
     Route: 048
     Dates: start: 20180109, end: 20180110
  22. ARANESP [Concomitant]
     Active Substance: DARBEPOETIN ALFA
     Dosage: 150 MICROGRAM
     Route: 058
     Dates: start: 20150109
  23. SEPTRIN [Concomitant]
     Active Substance: SULFAMETHOXAZOLE\TRIMETHOPRIM
     Dosage: 160 MILLIGRAM
     Route: 048
     Dates: start: 20180109, end: 20180110

REACTIONS (1)
  - Supraventricular tachycardia [Recovered/Resolved]

NARRATIVE: CASE EVENT DATE: 20180316
